FAERS Safety Report 24087039 (Version 1)
Quarter: 2024Q3

REPORT INFORMATION
  Report Type: Spontaneous
  Country: US (occurrence: US)
  Receive Date: 20240713
  Receipt Date: 20240713
  Transmission Date: 20241017
  Serious: Yes (Death, Other)
  Sender: AMGEN
  Company Number: US-AMGEN-USASP2024134632

PATIENT

DRUGS (1)
  1. PREDNISONE [Suspect]
     Active Substance: PREDNISONE
     Indication: Burkitt^s lymphoma
     Dosage: UNK
     Route: 065

REACTIONS (7)
  - Burkitt^s lymphoma [Fatal]
  - Post transplant lymphoproliferative disorder [Fatal]
  - Transplantation complication [Fatal]
  - Transplant rejection [Unknown]
  - Epstein-Barr viraemia [Unknown]
  - Disease recurrence [Unknown]
  - Therapy partial responder [Unknown]
